FAERS Safety Report 20695529 (Version 1)
Quarter: 2022Q2

REPORT INFORMATION
  Report Type: Spontaneous
  Country: US (occurrence: None)
  Receive Date: 20220408
  Receipt Date: 20220408
  Transmission Date: 20220721
  Serious: Yes (Hospitalization)
  Sender: FDA-Public Use
  Company Number: None

PATIENT
  Age: 51 Year
  Sex: Male
  Weight: 46.7 kg

DRUGS (1)
  1. NALTREXONE [Suspect]
     Active Substance: NALTREXONE
     Indication: Alcoholism
     Dosage: OTHER FREQUENCY : ONCE;?
     Route: 030
     Dates: start: 20220317, end: 20220317

REACTIONS (2)
  - Embolia cutis medicamentosa [None]
  - Rhabdomyolysis [None]

NARRATIVE: CASE EVENT DATE: 20220317
